FAERS Safety Report 10214000 (Version 1)
Quarter: 2014Q2

REPORT INFORMATION
  Report Type: Spontaneous
  Country: DK (occurrence: DK)
  Receive Date: 20140603
  Receipt Date: 20140603
  Transmission Date: 20141212
  Serious: Yes (Other)
  Sender: FDA-Public Use
  Company Number: DK-WATSON-2014-11465

PATIENT
  Age: 25 Year
  Sex: Female
  Weight: 47 kg

DRUGS (1)
  1. METRONIDAZOL ACTAVIS [Suspect]
     Indication: VAGINAL INFECTION
     Dosage: 500 MG, TID
     Route: 048
     Dates: start: 20140326, end: 20140403

REACTIONS (14)
  - Paranoia [Recovering/Resolving]
  - Dysgeusia [Recovering/Resolving]
  - Diarrhoea [Recovering/Resolving]
  - Nausea [Recovering/Resolving]
  - Dry mouth [Recovering/Resolving]
  - Foaming at mouth [Recovering/Resolving]
  - Visual impairment [Recovering/Resolving]
  - Muscle spasms [Recovering/Resolving]
  - Anxiety [Recovering/Resolving]
  - Hypertension [Recovering/Resolving]
  - Skin irritation [Recovering/Resolving]
  - Hallucination, auditory [Recovering/Resolving]
  - Breath odour [Recovering/Resolving]
  - Abdominal distension [Recovering/Resolving]
